FAERS Safety Report 13916089 (Version 2)
Quarter: 2017Q3

REPORT INFORMATION
  Report Type: Spontaneous
  Country: DE (occurrence: DE)
  Receive Date: 20170829
  Receipt Date: 20170911
  Transmission Date: 20171127
  Serious: Yes (Death, Hospitalization, Other)
  Sender: FDA-Public Use
  Company Number: DE-MYLANLABS-2017M1052873

PATIENT
  Age: 47 Year
  Sex: Male
  Weight: 81 kg

DRUGS (15)
  1. DISTRANEURINE                      /00027501/ [Suspect]
     Active Substance: CLOMETHIAZOLE
     Indication: PRODUCT USED FOR UNKNOWN INDICATION
     Dosage: UNK
     Route: 065
  2. LORMETAZEPAM [Concomitant]
     Active Substance: LORMETAZEPAM
     Indication: SCHIZOPHRENIA
     Dosage: 2MG
     Route: 065
  3. PERAZINE [Suspect]
     Active Substance: PERAZINE
     Indication: PRODUCT USED FOR UNKNOWN INDICATION
     Dosage: UNK
     Route: 065
  4. DIAZEPAM. [Concomitant]
     Active Substance: DIAZEPAM
     Indication: SCHIZOPHRENIA
     Route: 065
  5. OXAZEPAM. [Concomitant]
     Active Substance: OXAZEPAM
     Indication: SCHIZOPHRENIA
     Route: 065
  6. AMITRIPTYLINE [Suspect]
     Active Substance: AMITRIPTYLINE
     Indication: PRODUCT USED FOR UNKNOWN INDICATION
     Dosage: UNK
     Route: 065
  7. PHENOBARBITAL. [Suspect]
     Active Substance: PHENOBARBITAL
     Indication: PRODUCT USED FOR UNKNOWN INDICATION
     Dosage: UNK
     Route: 065
  8. THIAMAZOLE [Concomitant]
     Active Substance: METHIMAZOLE
     Indication: HYPERTHYROIDISM
     Dosage: 20MG/DAY
     Route: 065
  9. HALOPERIDOL. [Suspect]
     Active Substance: HALOPERIDOL
     Indication: PRODUCT USED FOR UNKNOWN INDICATION
     Dosage: 10 MG, UNK
     Route: 065
  10. BIPERIDEN [Suspect]
     Active Substance: BIPERIDEN
     Indication: PRODUCT USED FOR UNKNOWN INDICATION
     Dosage: 8 MG, UNK
     Route: 065
  11. LEVOMEPROMAZINE [Suspect]
     Active Substance: LEVOMEPROMAZINE
     Indication: PRODUCT USED FOR UNKNOWN INDICATION
     Dosage: 400 MG, QD
     Route: 065
  12. PROMETHAZINE [Suspect]
     Active Substance: PROMETHAZINE\PROMETHAZINE HYDROCHLORIDE
     Indication: PRODUCT USED FOR UNKNOWN INDICATION
     Dosage: UNK
     Route: 065
  13. RISPERIDONE. [Suspect]
     Active Substance: RISPERIDONE
     Indication: PRODUCT USED FOR UNKNOWN INDICATION
     Dosage: UNK
     Route: 065
  14. OLANZAPINE. [Suspect]
     Active Substance: OLANZAPINE
     Indication: PRODUCT USED FOR UNKNOWN INDICATION
     Dosage: 15 MG, QD
     Route: 065
  15. CHLORPROTHIXENE [Suspect]
     Active Substance: CHLORPROTHIXENE
     Indication: PRODUCT USED FOR UNKNOWN INDICATION
     Dosage: 450 MG, UNK
     Route: 065

REACTIONS (7)
  - Peritonitis [Unknown]
  - Eating disorder [Unknown]
  - Cardiac failure [Fatal]
  - General physical health deterioration [Unknown]
  - Ileus paralytic [Unknown]
  - Pneumonia aspiration [Unknown]
  - Gastrointestinal necrosis [Unknown]
